FAERS Safety Report 8621551-X (Version None)
Quarter: 2012Q3

REPORT INFORMATION
  Report Type: 
  Country: None (occurrence: None)
  Receive Date: 20120824
  Receipt Date: 20120820
  Transmission Date: 20120928
  Serious: Yes (Death, Hospitalization, Other)
  Sender: FDA-Public Use
  Company Number: JP-MERCK-2011SP053521

PATIENT

DRUGS (12)
  1. TEMOZOLOMIDE [Suspect]
     Indication: ANAPLASTIC ASTROCYTOMA
     Dosage: 75 MG/M2, QD
     Route: 048
     Dates: start: 20081014, end: 20081110
  2. ALPRAZOLAM [Concomitant]
     Route: 048
     Dates: start: 20080909
  3. SULFAMETHOXAZOLE AND TRIMETHOPRIM [Suspect]
     Indication: ANTIFUNGAL PROPHYLAXIS
     Dosage: UNK
     Route: 048
     Dates: start: 20081022, end: 20081116
  4. ORGACARPIN [Concomitant]
     Route: 048
     Dates: start: 20080827
  5. MOTILIUM [Concomitant]
     Indication: PROPHYLAXIS
     Route: 048
     Dates: start: 20081014
  6. HALOPERIDOL [Concomitant]
     Route: 048
     Dates: start: 20080906
  7. LOXONIN [Concomitant]
     Route: 048
     Dates: start: 20080831
  8. CLOBAZAM [Concomitant]
     Dosage: UNK
     Route: 048
     Dates: start: 20081212
  9. FAMOTIDINE [Concomitant]
     Indication: PROPHYLAXIS
     Dates: start: 20080902
  10. PHENYTOIN SODIUM CAP [Suspect]
     Indication: ANAPLASTIC ASTROCYTOMA
     Route: 048
     Dates: start: 20080909, end: 20081124
  11. VOLTAREN [Concomitant]
     Route: 054
     Dates: start: 20080905
  12. LASIX [Concomitant]

REACTIONS (11)
  - RESPIRATORY FAILURE [None]
  - PYREXIA [None]
  - CHILLS [None]
  - NEUTROPHIL COUNT DECREASED [None]
  - HYPERSENSITIVITY [None]
  - TREMOR [None]
  - ACUTE RESPIRATORY DISTRESS SYNDROME [None]
  - HICCUPS [None]
  - CONJUNCTIVAL HYPERAEMIA [None]
  - EXTRAPYRAMIDAL DISORDER [None]
  - DISEASE PROGRESSION [None]
